FAERS Safety Report 5022405-0 (Version None)
Quarter: 2006Q2

REPORT INFORMATION
  Report Type: 
  Country: None (occurrence: None)
  Receive Date: 20060605
  Receipt Date: 20060523
  Transmission Date: 20061013
  Serious: Yes (Hospitalization, Other)
  Sender: FDA-Public Use
  Company Number: 2006053847

PATIENT
  Age: 70 Year
  Sex: Female

DRUGS (9)
  1. LYRICA [Suspect]
     Indication: HEADACHE
     Dosage: SEE IMAGE
     Route: 048
     Dates: start: 20051201, end: 20060324
  2. LYRICA [Suspect]
     Indication: HEADACHE
     Dosage: SEE IMAGE
     Route: 048
     Dates: start: 20060101, end: 20060324
  3. CAPOTEN [Suspect]
     Indication: ILL-DEFINED DISORDER
  4. EVISTA [Concomitant]
  5. INDAPAMIDE [Concomitant]
  6. MINOXIDIL [Concomitant]
  7. LANSOPRAZOL (LANSOPRAZOLE) [Concomitant]
  8. FENOFIBRATE [Concomitant]
  9. VITAMINS (VITAMINS) [Concomitant]

REACTIONS (11)
  - ASTHENIA [None]
  - BLINDNESS UNILATERAL [None]
  - CHEST DISCOMFORT [None]
  - DRUG INEFFECTIVE [None]
  - EYE DISORDER [None]
  - FEELING COLD [None]
  - FEELING HOT [None]
  - HELICOBACTER GASTRITIS [None]
  - HYPERTENSION [None]
  - MALAISE [None]
  - TREMOR [None]
